FAERS Safety Report 4640812-2 (Version None)
Quarter: 2005Q2

REPORT INFORMATION
  Report Type: 
  Country: None (occurrence: None)
  Receive Date: 20050324
  Receipt Date: 20050215
  Transmission Date: 20051028
  Serious: No
  Sender: FDA-Public Use
  Company Number: 212491

PATIENT
  Sex: 0

DRUGS (1)
  1. AVASTIN [Suspect]

REACTIONS (1)
  - DERMATITIS EXFOLIATIVE [None]
